FAERS Safety Report 10656631 (Version 1)
Quarter: 2014Q4

REPORT INFORMATION
  Report Type: Spontaneous
  Country: US (occurrence: US)
  Receive Date: 20141216
  Receipt Date: 20141216
  Transmission Date: 20150529
  Serious: No
  Sender: FDA-Public Use
  Company Number: US-CELGENEUS-163-20785-13112505

PATIENT
  Sex: Female

DRUGS (1)
  1. THALOMID [Suspect]
     Active Substance: THALIDOMIDE
     Indication: LICHENIFICATION
     Dosage: 50 MILLIGRAM
     Route: 048
     Dates: start: 20130820

REACTIONS (1)
  - Peripheral swelling [Unknown]
